FAERS Safety Report 11062126 (Version 1)
Quarter: 2015Q2

REPORT INFORMATION
  Report Type: Spontaneous
  Country: FR (occurrence: FR)
  Receive Date: 20150424
  Receipt Date: 20150424
  Transmission Date: 20150821
  Serious: Yes (Hospitalization)
  Sender: FDA-Public Use
  Company Number: FR-JNJFOC-20150412756

PATIENT
  Age: 71 Year
  Sex: Female

DRUGS (6)
  1. AERIUS [Concomitant]
     Active Substance: DESLORATADINE
     Route: 065
  2. ZYMADUO [Concomitant]
     Route: 065
  3. DEROXAT [Concomitant]
     Active Substance: PAROXETINE HYDROCHLORIDE
     Route: 065
  4. REMINYL [Suspect]
     Active Substance: GALANTAMINE
     Indication: DEMENTIA ALZHEIMER^S TYPE
     Route: 048
     Dates: end: 20150323
  5. NORDAZ [Concomitant]
     Active Substance: NORDAZEPAM
     Route: 048
  6. ZOCOR [Concomitant]
     Active Substance: SIMVASTATIN
     Route: 048

REACTIONS (5)
  - Amnesia [Unknown]
  - Fall [Recovered/Resolved]
  - Blood creatine phosphokinase increased [Recovered/Resolved]
  - Syncope [Recovered/Resolved]
  - Gait disturbance [Recovered/Resolved]

NARRATIVE: CASE EVENT DATE: 20150323
